FAERS Safety Report 7510699-9 (Version None)
Quarter: 2011Q2

REPORT INFORMATION
  Report Type: 
  Country: None (occurrence: None)
  Receive Date: 20110530
  Receipt Date: 20110516
  Transmission Date: 20111010
  Serious: Yes (Other)
  Sender: FDA-Public Use
  Company Number: PHHY2011DE42134

PATIENT
  Sex: Female
  Weight: 70 kg

DRUGS (2)
  1. BENDAMUSTINE [Concomitant]
     Indication: MULTIPLE MYELOMA
     Dosage: 200 MG, UNK
     Route: 042
     Dates: start: 20101018
  2. PAMIDRONATE DISODIUM [Suspect]
     Indication: MULTIPLE MYELOMA
     Dosage: 90 MG, UNK
     Route: 042
     Dates: start: 20100920, end: 20110315

REACTIONS (1)
  - OSTEONECROSIS [None]
